FAERS Safety Report 9165525 (Version 1)
Quarter: 2013Q1

REPORT INFORMATION
  Report Type: Spontaneous
  Country: US (occurrence: None)
  Receive Date: 20130301
  Receipt Date: 20130301
  Transmission Date: 20140127
  Serious: Yes (Hospitalization)
  Sender: FDA-Public Use
  Company Number: ACO_34397_2013

PATIENT
  Age: 58 Year
  Sex: Male
  Weight: 83.9 kg

DRUGS (7)
  1. AMPYRA (DALFAMPRIDINE) TABLET, 10MG [Suspect]
     Indication: GAIT DISTURBANCE
     Dosage: Q12HRS
     Route: 048
     Dates: start: 201004
  2. COPAXONE (GLATIRAMER ACETATE) [Concomitant]
  3. BACLOFEN (BACLOFEN) (BACLOFEN) [Concomitant]
  4. GABAPENTIN (GABAPENTIN) [Concomitant]
  5. FLOMAX (TAMSULOSIN HYDROCHLORIDE) [Concomitant]
  6. SANCTURA (TROSPIUM CHLORIDE) [Concomitant]
  7. XANAX (ALPRAZOLAM) [Concomitant]

REACTIONS (1)
  - Cerebrovascular accident [None]
